FAERS Safety Report 22227239 (Version 2)
Quarter: 2023Q2

REPORT INFORMATION
  Report Type: Spontaneous
  Country: PL (occurrence: PL)
  Receive Date: 20230419
  Receipt Date: 20230501
  Transmission Date: 20230722
  Serious: Yes (Other)
  Sender: FDA-Public Use
  Company Number: PL-MYLANLABS-2023M1040335

PATIENT
  Age: 72 Year
  Sex: Female
  Weight: 52 kg

DRUGS (7)
  1. XANAX [Suspect]
     Active Substance: ALPRAZOLAM
     Indication: Tension
     Dosage: 0.25 MILLIGRAM, QD (1 TABLET A DAY)
     Route: 065
     Dates: start: 202302
  2. XANAX [Suspect]
     Active Substance: ALPRAZOLAM
     Indication: Distractibility
     Dosage: 0.25 MILLIGRAM, BID (1 TABLET TWICE A DAY)
     Route: 065
     Dates: start: 202302
  3. XANAX [Suspect]
     Active Substance: ALPRAZOLAM
     Indication: Disturbance in attention
     Dosage: 0.25 MILLIGRAM, QD  (1 TABLET A DAY)
     Route: 065
     Dates: start: 202302
  4. XANAX [Suspect]
     Active Substance: ALPRAZOLAM
     Dosage: UNK
     Route: 065
  5. XANAX [Suspect]
     Active Substance: ALPRAZOLAM
     Indication: Product used for unknown indication
     Dosage: UNK
     Route: 065
  6. VALSARTAN [Concomitant]
     Active Substance: VALSARTAN
     Indication: Hypertension
     Dosage: 80 MILLIGRAM, UNK
     Route: 065
     Dates: start: 202302
  7. INDAPAMIDE [Concomitant]
     Active Substance: INDAPAMIDE
     Indication: Hypertension
     Dosage: 1.5 MILLIGRAM, UNK
     Route: 065
     Dates: start: 202302

REACTIONS (5)
  - Urinary retention [Unknown]
  - Skin reaction [Unknown]
  - Paraesthesia [Unknown]
  - Somnolence [Unknown]
  - Headache [Unknown]
